FAERS Safety Report 16284053 (Version 1)
Quarter: 2019Q2

REPORT INFORMATION
  Report Type: Spontaneous
  Country: US (occurrence: US)
  Receive Date: 20190507
  Receipt Date: 20190507
  Transmission Date: 20190711
  Serious: Yes (Death, Other)
  Sender: FDA-Public Use
  Company Number: PHEH2019US019508

PATIENT
  Sex: Male

DRUGS (1)
  1. TASIGNA [Suspect]
     Active Substance: NILOTINIB
     Indication: CHRONIC MYELOID LEUKAEMIA
     Dosage: 200 MG, BID
     Route: 048
     Dates: start: 201302

REACTIONS (26)
  - Peripheral ischaemia [Unknown]
  - Peripheral vascular disorder [Unknown]
  - Hyperlipidaemia [Unknown]
  - Peripheral arterial occlusive disease [Unknown]
  - Hypertension [Unknown]
  - Diverticulum [Unknown]
  - Iron deficiency anaemia [Unknown]
  - Gastritis [Unknown]
  - Haemorrhoids [Unknown]
  - Postoperative wound infection [Unknown]
  - Herpes zoster [Unknown]
  - Coronary artery disease [Unknown]
  - Inguinal hernia [Unknown]
  - Death [Fatal]
  - Carotid artery stenosis [Unknown]
  - Myocardial infarction [Unknown]
  - Diverticulum intestinal [Unknown]
  - Large intestine polyp [Unknown]
  - Gastrooesophageal reflux disease [Unknown]
  - Depression [Unknown]
  - Carotid artery disease [Unknown]
  - Skin cancer [Unknown]
  - Neuropathy peripheral [Unknown]
  - Cardiac failure congestive [Unknown]
  - Pain in extremity [Unknown]
  - Chest pain [Unknown]
